FAERS Safety Report 15928926 (Version 1)
Quarter: 2019Q1

REPORT INFORMATION
  Report Type: Spontaneous
  Country: FR (occurrence: FR)
  Receive Date: 20190206
  Receipt Date: 20190206
  Transmission Date: 20190417
  Serious: Yes (Other)
  Sender: FDA-Public Use
  Company Number: PHHY2019FR026853

PATIENT
  Sex: Male

DRUGS (1)
  1. ENTRESTO [Suspect]
     Active Substance: SACUBITRIL\VALSARTAN
     Indication: CARDIAC FAILURE
     Dosage: 2 DF, QD
     Route: 065

REACTIONS (5)
  - Cardiac failure [Recovering/Resolving]
  - Haemolytic anaemia [Unknown]
  - Renal failure [Unknown]
  - Blood pressure systolic abnormal [Unknown]
  - Anaemia [Recovered/Resolved]
